FAERS Safety Report 5826557-1 (Version None)
Quarter: 2008Q3

REPORT INFORMATION
  Report Type: 
  Country: None (occurrence: None)
  Receive Date: 20080729
  Receipt Date: 20080723
  Transmission Date: 20090109
  Serious: Yes (Hospitalization)
  Sender: FDA-Public Use
  Company Number: BR-ELI_LILLY_AND_COMPANY-BR200806006144

PATIENT
  Age: 50 Year
  Sex: Female

DRUGS (3)
  1. BYETTA [Suspect]
     Dosage: 5 UG, EACH MORNING
     Route: 058
     Dates: start: 20080620
  2. BYETTA [Suspect]
     Dosage: 5 UG, EACH EVENING
     Route: 065
     Dates: start: 20080620
  3. INSULIN INSULATARD NPH NORDISK [Concomitant]
     Dosage: UNK, UNKNOWN
     Route: 065

REACTIONS (2)
  - DIABETES MELLITUS [None]
  - HYPERTENSIVE CRISIS [None]
